FAERS Safety Report 8871352 (Version 1)
Quarter: 2012Q4

REPORT INFORMATION
  Report Type: 
  Country: US (occurrence: US)
  Receive Date: 20121026
  Receipt Date: 20121026
  Transmission Date: 20130627
  Serious: Yes (Hospitalization)
  Sender: FDA-Public Use
  Company Number: US-AMGEN-USASP2012048179

PATIENT
  Age: 68 Year
  Sex: Female
  Weight: 45 kg

DRUGS (9)
  1. ENBREL [Suspect]
     Indication: PRODUCT USED FOR UNKNOWN INDICATION
     Dosage: 25 mg, 2 times/wk
     Route: 058
  2. COREG [Concomitant]
     Dosage: 12.5 mg, UNK
  3. PLAQUENIL                          /00072602/ [Concomitant]
     Dosage: 200 mg, UNK
  4. LASIX                              /00032601/ [Concomitant]
     Dosage: 20 mg, UNK
  5. PREDNISONE [Concomitant]
     Dosage: 2.5 mg, UNK
  6. TRAVATAN Z [Concomitant]
     Dosage: 0.004 %, UNK
  7. LISINOPRIL [Concomitant]
     Dosage: 2.5 mg, UNK
  8. SIMVASTATIN [Concomitant]
     Dosage: 40 mg, UNK
  9. TIMOLOL [Concomitant]
     Dosage: 0.25 %,  (op)

REACTIONS (7)
  - Cardiac failure congestive [Unknown]
  - Dry skin [Unknown]
  - Dehydration [Unknown]
  - Hypotension [Unknown]
  - Pruritus [Unknown]
  - Injection site rash [Unknown]
  - Injection site pruritus [Unknown]
